FAERS Safety Report 8199519-X (Version None)
Quarter: 2012Q1

REPORT INFORMATION
  Report Type: 
  Country: None (occurrence: None)
  Receive Date: 20120310
  Receipt Date: 20120306
  Transmission Date: 20120608
  Serious: No
  Sender: FDA-Public Use
  Company Number: US-PFIZER INC-2012060240

PATIENT
  Sex: Female
  Weight: 97.506 kg

DRUGS (1)
  1. NEURONTIN [Suspect]
     Indication: WEIGHT INCREASED
     Dosage: 300 MG, 2X/DAY
     Route: 048
     Dates: start: 19830101

REACTIONS (1)
  - RENAL DISORDER [None]
